FAERS Safety Report 22346652 (Version 2)
Quarter: 2023Q4

REPORT INFORMATION
  Report Type: Spontaneous
  Country: DE (occurrence: DE)
  Receive Date: 20230520
  Receipt Date: 20231220
  Transmission Date: 20240109
  Serious: Yes (Hospitalization, Other)
  Sender: FDA-Public Use
  Company Number: DE-ROCHE-3297406

PATIENT
  Age: 60 Year
  Sex: Male
  Weight: 80 kg

DRUGS (19)
  1. LEUCOVORIN CALCIUM [Suspect]
     Active Substance: LEUCOVORIN CALCIUM
     Indication: Neoplasm malignant
     Dosage: 840 MILLIGRAM
     Route: 042
     Dates: end: 20230418
  2. LEUCOVORIN CALCIUM [Suspect]
     Active Substance: LEUCOVORIN CALCIUM
     Dosage: UNK, 2 WEEK
     Route: 042
     Dates: start: 20230301
  3. IRINOTECAN [Suspect]
     Active Substance: IRINOTECAN
     Indication: Neoplasm malignant
     Dosage: 238.5 MILLIGRAM
     Route: 042
     Dates: end: 20230418
  4. IRINOTECAN [Suspect]
     Active Substance: IRINOTECAN
     Dosage: UNK, 2 WEEK
     Route: 042
     Dates: start: 20230301
  5. AFLIBERCEPT [Suspect]
     Active Substance: AFLIBERCEPT
     Indication: Neoplasm malignant
     Dosage: 336 MILLIGRAM
     Route: 042
     Dates: end: 20230418
  6. AFLIBERCEPT [Suspect]
     Active Substance: AFLIBERCEPT
     Dosage: UNK, 2 WEEK
     Route: 042
     Dates: start: 20230301
  7. BEVACIZUMAB [Suspect]
     Active Substance: BEVACIZUMAB
     Indication: Product used for unknown indication
     Dosage: 637.5 MILLIGRAM, 3 WEEK
     Route: 042
     Dates: start: 20220622
  8. BEVACIZUMAB [Suspect]
     Active Substance: BEVACIZUMAB
     Dosage: 637.5 MILLIGRAM, 3 WEEK
     Route: 042
     Dates: start: 20230105
  9. CAPECITABINE [Suspect]
     Active Substance: CAPECITABINE
     Indication: Product used for unknown indication
     Dosage: 1000 MILLIGRAM, TWO TIMES A DAY
     Route: 048
     Dates: start: 20220622
  10. CAPECITABINE [Suspect]
     Active Substance: CAPECITABINE
     Dosage: 1000 MILLIGRAM, TWO TIMES A DAY
     Route: 048
     Dates: start: 20230105
  11. FLUOROURACIL [Suspect]
     Active Substance: FLUOROURACIL
     Indication: Neoplasm malignant
     Dosage: 3780 MILLIGRAM
     Route: 042
     Dates: end: 20230418
  12. FLUOROURACIL [Suspect]
     Active Substance: FLUOROURACIL
     Dosage: 2 WEEK
     Route: 042
     Dates: start: 20230301
  13. LEUCOVORIN [Suspect]
     Active Substance: LEUCOVORIN\LEUCOVORIN CALCIUM
     Indication: Product used for unknown indication
     Dosage: 840 MILLIGRAM, 2ND WEEK
     Route: 065
     Dates: start: 20230301, end: 20230418
  14. CHOLECALCIFEROL [Concomitant]
     Active Substance: CHOLECALCIFEROL
     Indication: Product used for unknown indication
     Dosage: 1 TIMES IN 1 WEEK20.000 IE
     Route: 065
     Dates: start: 20211223
  15. LOPERAMIDE [Concomitant]
     Active Substance: LOPERAMIDE
     Indication: Product used for unknown indication
     Dosage: 2 MILLIGRAM, AS NECESSARY
     Route: 065
     Dates: start: 20220615
  16. METOCLOPRAMIDE HYDROCHLORIDE [Concomitant]
     Active Substance: METOCLOPRAMIDE HYDROCHLORIDE
     Indication: Product used for unknown indication
     Dosage: 20 MILLIGRAM, ONCE A DAY
     Route: 065
     Dates: start: 20220316
  17. ONDANSETRON [Concomitant]
     Active Substance: ONDANSETRON
     Indication: Product used for unknown indication
     Dosage: 8 MILLIGRAM, AS NECESSARY
     Route: 065
     Dates: start: 20220316
  18. SELENIUM [Concomitant]
     Active Substance: SELENIUM
     Indication: Product used for unknown indication
     Dosage: 100 MILLIGRAM, ONCE A DAY
     Route: 065
     Dates: start: 20220316
  19. VITAMIN B12 NOS;VITAMIN B6 [Concomitant]
     Indication: Product used for unknown indication
     Dosage: UNK
     Route: 065
     Dates: start: 20211223

REACTIONS (1)
  - Cholecystitis [Recovered/Resolved]

NARRATIVE: CASE EVENT DATE: 20230110
